FAERS Safety Report 14841653 (Version 1)
Quarter: 2018Q2

REPORT INFORMATION
  Report Type: Spontaneous
  Country: US (occurrence: US)
  Receive Date: 20180418
  Receipt Date: 20180418
  Transmission Date: 20180711
  Serious: Yes (Hospitalization)
  Sender: FDA-Public Use
  Company Number: None

PATIENT
  Age: 83 Year
  Sex: Male

DRUGS (1)
  1. CAPECITABINE. [Suspect]
     Active Substance: CAPECITABINE
     Route: 048

REACTIONS (4)
  - Hypotension [None]
  - Diarrhoea [None]
  - Blood potassium decreased [None]
  - Blood magnesium decreased [None]

NARRATIVE: CASE EVENT DATE: 20180407
